FAERS Safety Report 5890747-2 (Version None)
Quarter: 2008Q3

REPORT INFORMATION
  Report Type: 
  Country: None (occurrence: None)
  Receive Date: 20080922
  Receipt Date: 20080915
  Transmission Date: 20090109
  Serious: Yes (Hospitalization, Other)
  Sender: FDA-Public Use
  Company Number: US-BAYER-200827980NA

PATIENT
  Age: 43 Year
  Sex: Female

DRUGS (2)
  1. YASMIN [Suspect]
     Indication: PREMENSTRUAL SYNDROME
     Route: 048
     Dates: start: 20040101, end: 20060101
  2. YAZ [Suspect]
     Indication: PREMENSTRUAL SYNDROME
     Route: 048
     Dates: start: 20060101

REACTIONS (6)
  - COLITIS ULCERATIVE [None]
  - HAEMATEMESIS [None]
  - RECTAL HAEMORRHAGE [None]
  - THYROID CANCER [None]
  - THYROID NEOPLASM [None]
  - UTERINE LEIOMYOMA [None]
